FAERS Safety Report 6854518-2 (Version None)
Quarter: 2010Q3

REPORT INFORMATION
  Report Type: 
  Country: None (occurrence: None)
  Receive Date: 20100717
  Receipt Date: 20080325
  Transmission Date: 20110219
  Serious: No
  Sender: FDA-Public Use
  Company Number: US-PFIZER INC-2008001745

PATIENT
  Sex: Male

DRUGS (3)
  1. CHANTIX [Suspect]
  2. RITALIN [Interacting]
     Indication: ATTENTION DEFICIT/HYPERACTIVITY DISORDER
  3. STRATTERA [Interacting]
     Indication: ATTENTION DEFICIT/HYPERACTIVITY DISORDER

REACTIONS (2)
  - ATTENTION DEFICIT/HYPERACTIVITY DISORDER [None]
  - DRUG INTERACTION [None]
